FAERS Safety Report 13722472 (Version 1)
Quarter: 2017Q3

REPORT INFORMATION
  Report Type: Other
  Country: None (occurrence: US)
  Receive Date: 20170706
  Receipt Date: 20170706
  Transmission Date: 20171127
  Serious: Yes (Other)
  Sender: FDA-Public Use
  Company Number: US-GUTHY-RENKER LLC-2023002

PATIENT
  Age: 64 Year
  Sex: Female

DRUGS (5)
  1. PROACTIV REPAIRING TREATMENT [Suspect]
     Active Substance: BENZOYL PEROXIDE
     Route: 061
     Dates: start: 20160129, end: 20160129
  2. PROACTIV SOLUTION ADVANCED DAILY OIL CONTROL [Suspect]
     Active Substance: SALICYLIC ACID
     Route: 061
     Dates: start: 20160129, end: 20160129
  3. COPD MEDICATIONS [Concomitant]
     Active Substance: UNSPECIFIED INGREDIENT
  4. PROACTIV SOLUTION RENEWING CLEANSER [Suspect]
     Active Substance: BENZOYL PEROXIDE
     Indication: ACNE
     Route: 061
     Dates: start: 20160129, end: 20160129
  5. PROACTIV SPF 15 MOISTURIZER [Suspect]
     Active Substance: OCTINOXATE\ZINC OXIDE
     Route: 061
     Dates: start: 20160129, end: 20160129

REACTIONS (2)
  - Dyspnoea [Not Recovered/Not Resolved]
  - Wheezing [None]

NARRATIVE: CASE EVENT DATE: 20160129
